FAERS Safety Report 19998278 (Version 2)
Quarter: 2021Q4

REPORT INFORMATION
  Report Type: Spontaneous
  Country: AR (occurrence: AR)
  Receive Date: 20211026
  Receipt Date: 20211203
  Transmission Date: 20220303
  Serious: Yes (Disabling, Other)
  Sender: FDA-Public Use
  Company Number: AR-PFIZER INC-202101368007

PATIENT
  Age: 10 Year
  Sex: Female

DRUGS (1)
  1. GENOTROPIN [Suspect]
     Active Substance: SOMATROPIN
     Indication: Foetal growth restriction
     Dosage: 1.0 TO 1.4 MG, SEVEN TIMES PER WEEK
     Dates: start: 20171029, end: 2019

REACTIONS (2)
  - Epilepsy [Not Recovered/Not Resolved]
  - Hypoacusis [Not Recovered/Not Resolved]
